FAERS Safety Report 8041140-8 (Version None)
Quarter: 2012Q1

REPORT INFORMATION
  Report Type: 
  Country: None (occurrence: None)
  Receive Date: 20120112
  Receipt Date: 20120104
  Transmission Date: 20120608
  Serious: No
  Sender: FDA-Public Use
  Company Number: AU-JNJFOC-20120101655

PATIENT
  Sex: Male

DRUGS (3)
  1. VOLTAREN [Concomitant]
     Route: 065
  2. DURAGESIC-100 [Suspect]
     Dosage: (25 UG/HR+50 UG/HR)
     Route: 062
  3. DURAGESIC-100 [Suspect]
     Indication: RADICULAR PAIN
     Route: 062

REACTIONS (7)
  - PAIN IN EXTREMITY [None]
  - DEPRESSION [None]
  - EMOTIONAL DISTRESS [None]
  - WRONG TECHNIQUE IN DRUG USAGE PROCESS [None]
  - BEDRIDDEN [None]
  - MUSCLE SPASMS [None]
  - PRODUCT QUALITY ISSUE [None]
